FAERS Safety Report 9759831 (Version 1)
Quarter: 2013Q4

REPORT INFORMATION
  Report Type: Report from Study
  Country: SE (occurrence: SE)
  Receive Date: 20131216
  Receipt Date: 20131216
  Transmission Date: 20140711
  Serious: Yes (Hospitalization)
  Sender: FDA-Public Use
  Company Number: SE-MYLANLABS-2013S1027296

PATIENT
  Age: 9 Year
  Sex: Male

DRUGS (9)
  1. QUETIAPINE [Suspect]
     Indication: BIPOLAR DISORDER
     Dosage: 700 MG/D FOR 6M; THEN TITRATED TO 800 MG/D
     Route: 048
  2. QUETIAPINE [Suspect]
     Indication: ASPERGER^S DISORDER
     Dosage: 700 MG/D FOR 6M; THEN TITRATED TO 800 MG/D
     Route: 048
  3. QUETIAPINE [Suspect]
     Indication: OBSESSIVE-COMPULSIVE DISORDER
     Dosage: 700 MG/D FOR 6M; THEN TITRATED TO 800 MG/D
     Route: 048
  4. QUETIAPINE [Suspect]
     Indication: OPPOSITIONAL DEFIANT DISORDER
     Dosage: 700 MG/D FOR 6M; THEN TITRATED TO 800 MG/D
     Route: 048
  5. QUETIAPINE [Suspect]
     Indication: BIPOLAR DISORDER
     Dosage: 800 MG/D
     Route: 048
  6. QUETIAPINE [Suspect]
     Indication: ASPERGER^S DISORDER
     Dosage: 800 MG/D
     Route: 048
  7. QUETIAPINE [Suspect]
     Indication: OBSESSIVE-COMPULSIVE DISORDER
     Dosage: 800 MG/D
     Route: 048
  8. QUETIAPINE [Suspect]
     Indication: OPPOSITIONAL DEFIANT DISORDER
     Dosage: 800 MG/D
     Route: 048
  9. RISPERIDONE [Concomitant]
     Route: 048

REACTIONS (4)
  - Rhabdomyolysis [Recovering/Resolving]
  - Myositis [Recovering/Resolving]
  - Pyrexia [Unknown]
  - Dizziness [Unknown]
